FAERS Safety Report 7047743-1 (Version None)
Quarter: 2010Q4

REPORT INFORMATION
  Report Type: 
  Country: None (occurrence: None)
  Receive Date: 20101015
  Receipt Date: 20101008
  Transmission Date: 20110411
  Serious: Yes (Hospitalization)
  Sender: FDA-Public Use
  Company Number: DE-ALLERGAN-1012976US

PATIENT
  Age: 51 Year
  Sex: Female

DRUGS (1)
  1. OZURDEX [Suspect]
     Indication: MACULAR OEDEMA
     Dosage: UNK
     Route: 031
     Dates: start: 20100928, end: 20100928

REACTIONS (1)
  - ENDOPHTHALMITIS [None]
